FAERS Safety Report 4978869-1 (Version None)
Quarter: 2006Q2

REPORT INFORMATION
  Report Type: 
  Country: None (occurrence: None)
  Receive Date: 20060417
  Receipt Date: 20060331
  Transmission Date: 20061013
  Serious: Yes (Other)
  Sender: FDA-Public Use
  Company Number: 220001M06CHE

PATIENT
  Sex: Male

DRUGS (7)
  1. SAIZEN [Suspect]
     Dates: start: 20050101
  2. IBUPROFEN [Concomitant]
  3. POLARAMINE [Concomitant]
  4. FLUCONAZOLE [Concomitant]
  5. MUCOSTA (REBAMIPIDE) [Concomitant]
  6. FAMOTIDINE [Concomitant]
  7. ALLOPURINOL [Concomitant]

REACTIONS (2)
  - ASTHENIA [None]
  - SYNCOPE [None]
